FAERS Safety Report 22530252 (Version 1)
Quarter: 2023Q2

REPORT INFORMATION
  Report Type: Spontaneous
  Country: PT (occurrence: None)
  Receive Date: 20230607
  Receipt Date: 20230607
  Transmission Date: 20230722
  Serious: Yes (Other)
  Sender: FDA-Public Use
  Company Number: 2023A131146

PATIENT
  Age: 82 Year
  Sex: Male

DRUGS (3)
  1. OMEPRAZOLE [Suspect]
     Active Substance: OMEPRAZOLE
     Route: 048
  2. PREDNISOLONE [Concomitant]
     Active Substance: PREDNISOLONE
     Dosage: 5 MG
  3. VILANTEROL/UMECLIDINIUM BROMIDE [Concomitant]
     Dosage: 55/22UG

REACTIONS (4)
  - Cutaneous vasculitis [Unknown]
  - Hypoxia [Unknown]
  - Palpable purpura [Unknown]
  - Tracheobronchitis [Unknown]
